FAERS Safety Report 4288707-0 (Version None)
Quarter: 2004Q1

REPORT INFORMATION
  Report Type: 
  Country: None (occurrence: None)
  Receive Date: 20040205
  Receipt Date: 20040115
  Transmission Date: 20041129
  Serious: No
  Sender: FDA-Public Use
  Company Number: 2003-110405-NL

PATIENT
  Age: 52 Year
  Sex: Male

DRUGS (18)
  1. MIRTAZAPINE [Suspect]
     Dosage: 15 MG/45 MG, ORAL
     Route: 048
     Dates: start: 20030821, end: 20030903
  2. MIRTAZAPINE [Suspect]
     Dosage: 15 MG/45 MG, ORAL
     Route: 048
     Dates: start: 20030904
  3. VENLAFAXINE HCL [Suspect]
     Dosage: 37.5 MG, ORAL;75 MG;150 MG;187.5 MG;225 MG; 150 MG
     Route: 048
     Dates: start: 20030922, end: 20030923
  4. VENLAFAXINE HCL [Suspect]
     Dosage: 37.5 MG, ORAL;75 MG;150 MG;187.5 MG;225 MG; 150 MG
     Route: 048
     Dates: start: 20030924, end: 20030929
  5. VENLAFAXINE HCL [Suspect]
     Dosage: 37.5 MG, ORAL;75 MG;150 MG;187.5 MG;225 MG; 150 MG
     Route: 048
     Dates: start: 20030930, end: 20031006
  6. VENLAFAXINE HCL [Suspect]
     Dosage: 37.5 MG, ORAL;75 MG;150 MG;187.5 MG;225 MG; 150 MG
     Route: 048
     Dates: start: 20031007, end: 20031008
  7. VENLAFAXINE HCL [Suspect]
     Dosage: 37.5 MG, ORAL;75 MG;150 MG;187.5 MG;225 MG; 150 MG
     Route: 048
     Dates: start: 20031009, end: 20031014
  8. VENLAFAXINE HCL [Suspect]
     Dosage: 37.5 MG, ORAL;75 MG;150 MG;187.5 MG;225 MG; 150 MG
     Route: 048
     Dates: start: 20031015, end: 20031026
  9. LORAZEPAM [Suspect]
     Dosage: 1.5 MG, ORAL;3 MG; 2 MG; 1.5 MG; 1 MG; 0.5 MG
     Route: 048
     Dates: start: 20030821, end: 20030910
  10. LORAZEPAM [Suspect]
     Dosage: 1.5 MG, ORAL;3 MG; 2 MG; 1.5 MG; 1 MG; 0.5 MG
     Route: 048
     Dates: start: 20030911, end: 20030915
  11. LORAZEPAM [Suspect]
     Dosage: 1.5 MG, ORAL;3 MG; 2 MG; 1.5 MG; 1 MG; 0.5 MG
     Route: 048
     Dates: start: 20030916, end: 20030928
  12. LORAZEPAM [Suspect]
     Dosage: 1.5 MG, ORAL;3 MG; 2 MG; 1.5 MG; 1 MG; 0.5 MG
     Route: 048
     Dates: start: 20030929, end: 20031006
  13. LORAZEPAM [Suspect]
     Dosage: 1.5 MG, ORAL;3 MG; 2 MG; 1.5 MG; 1 MG; 0.5 MG
     Route: 048
     Dates: start: 20031007, end: 20031016
  14. LORAZEPAM [Suspect]
     Dosage: 1.5 MG, ORAL;3 MG; 2 MG; 1.5 MG; 1 MG; 0.5 MG
     Route: 048
     Dates: start: 20031017
  15. METOPROLOL SUCCINATE [Suspect]
     Dosage: 47.5 MG/95 MG, ORAL
     Route: 048
     Dates: start: 20030913, end: 20030918
  16. METOPROLOL SUCCINATE [Suspect]
     Dosage: 47.5 MG/95 MG, ORAL
     Route: 048
     Dates: start: 20030919
  17. RISPERIDONE [Suspect]
     Dosage: 2 MG, ORAL
     Route: 048
     Dates: start: 20030821
  18. CHLORAL HYDRATE [Concomitant]

REACTIONS (4)
  - ALANINE AMINOTRANSFERASE INCREASED [None]
  - DRUG INTERACTION POTENTIATION [None]
  - GAMMA-GLUTAMYLTRANSFERASE INCREASED [None]
  - HEPATIC ENZYME INCREASED [None]
